FAERS Safety Report 8532239-8 (Version None)
Quarter: 2012Q3

REPORT INFORMATION
  Report Type: 
  Country: None (occurrence: None)
  Receive Date: 20120723
  Receipt Date: 20120716
  Transmission Date: 20120928
  Serious: Yes (Other)
  Sender: FDA-Public Use
  Company Number: US-009507513-1207USA005265

PATIENT

DRUGS (2)
  1. QVAR 40 [Suspect]
     Indication: ASTHMA
  2. ASMANEX TWISTHALER [Suspect]
     Indication: ASTHMA
     Dosage: 220 MICROGRAM, ONCE IN THE MORNING AND ONCE IN EVENING
     Dates: start: 20120619

REACTIONS (6)
  - LARYNGOSPASM [None]
  - COUGH [None]
  - PAIN [None]
  - MUSCLE TIGHTNESS [None]
  - MUSCULOSKELETAL PAIN [None]
  - THROAT TIGHTNESS [None]
